FAERS Safety Report 7513168-5 (Version None)
Quarter: 2011Q2

REPORT INFORMATION
  Report Type: 
  Country: None (occurrence: None)
  Receive Date: 20110531
  Receipt Date: 20110518
  Transmission Date: 20111010
  Serious: Yes (Hospitalization, Other)
  Sender: FDA-Public Use
  Company Number: US-MERCK-0907USA00026

PATIENT
  Age: 63 Year
  Sex: Male
  Weight: 66 kg

DRUGS (11)
  1. ZOCOR [Suspect]
     Route: 048
     Dates: start: 20030101, end: 20081201
  2. NITROGLYCERIN [Concomitant]
     Route: 065
  3. LASIX [Concomitant]
     Route: 048
  4. METOPROLOL [Concomitant]
     Route: 048
  5. ZOCOR [Suspect]
     Route: 065
  6. HYDRALAZINE [Concomitant]
     Route: 048
  7. IMDUR [Concomitant]
     Route: 048
  8. RANEXA [Suspect]
     Route: 048
     Dates: start: 20080101, end: 20081201
  9. PRILOSEC [Concomitant]
     Route: 048
  10. PLAVIX [Concomitant]
     Route: 065
  11. METOPROLOL [Concomitant]
     Route: 048

REACTIONS (9)
  - BRAIN NATRIURETIC PEPTIDE INCREASED [None]
  - ATRIAL FIBRILLATION [None]
  - BLOOD CREATININE INCREASED [None]
  - THROMBOPHLEBITIS SUPERFICIAL [None]
  - RHABDOMYOLYSIS [None]
  - CARDIAC FAILURE CONGESTIVE [None]
  - PNEUMONIA [None]
  - RESPIRATORY FAILURE [None]
  - DRUG INTERACTION [None]
